FAERS Safety Report 25401195 (Version 1)
Quarter: 2025Q2

REPORT INFORMATION
  Report Type: Spontaneous
  Country: GB (occurrence: GB)
  Receive Date: 20250605
  Receipt Date: 20250605
  Transmission Date: 20250717
  Serious: Yes (Life-Threatening, Other)
  Sender: ELI LILLY AND COMPANY
  Company Number: GB-MHRA-TPP31737975C518337YC1743679187682

PATIENT
  Age: 67 Year
  Sex: Male
  Weight: 83 kg

DRUGS (11)
  1. MOUNJARO [Suspect]
     Active Substance: TIRZEPATIDE
     Indication: Product used for unknown indication
     Dosage: UNK UNK, WEEKLY (1/W)
     Route: 065
     Dates: start: 202409
  2. ANUSOL [ZINC SULFATE] [Concomitant]
     Indication: Ill-defined disorder
     Dosage: UNK UNK, BID
     Route: 065
     Dates: start: 20250314, end: 20250320
  3. ATORVASTATIN [Concomitant]
     Active Substance: ATORVASTATIN
     Indication: Ill-defined disorder
     Dosage: UNK UNK, DAILY
     Route: 065
     Dates: start: 20241109
  4. BISOPROLOL [Concomitant]
     Active Substance: BISOPROLOL
     Indication: Ill-defined disorder
     Dosage: UNK UNK, DAILY
     Route: 065
     Dates: start: 20241109
  5. CITALOPRAM [Concomitant]
     Active Substance: CITALOPRAM
     Indication: Ill-defined disorder
     Dosage: UNK UNK, DAILY
     Route: 065
     Dates: start: 20241109
  6. EMPAGLIFLOZIN [Concomitant]
     Active Substance: EMPAGLIFLOZIN
     Indication: Ill-defined disorder
     Dosage: UNK UNK, DAILY
     Route: 065
     Dates: start: 20241109
  7. FUROSEMIDE [Concomitant]
     Active Substance: FUROSEMIDE
     Indication: Ill-defined disorder
     Dosage: UNK UNK, BID
     Route: 065
     Dates: start: 20241109
  8. LANSOPRAZOLE [Concomitant]
     Active Substance: LANSOPRAZOLE
     Indication: Dyspepsia
     Dates: start: 20241109
  9. LOSARTAN [Concomitant]
     Active Substance: LOSARTAN
     Indication: Ill-defined disorder
     Dosage: UNK UNK, DAILY
     Route: 065
     Dates: start: 20241109
  10. RIVAROXABAN [Concomitant]
     Active Substance: RIVAROXABAN
     Indication: Ill-defined disorder
     Dosage: UNK UNK, DAILY
     Route: 065
     Dates: start: 20241109
  11. SPIRONOLACTONE [Concomitant]
     Active Substance: SPIRONOLACTONE
     Indication: Ill-defined disorder
     Dosage: UNK UNK, DAILY
     Route: 065
     Dates: start: 20241109

REACTIONS (7)
  - Endocarditis bacterial [Recovering/Resolving]
  - Jaundice [Unknown]
  - White blood cell count decreased [Unknown]
  - Anaemia [Unknown]
  - C-reactive protein increased [Unknown]
  - Weight decreased [Unknown]
  - Platelet count decreased [Unknown]

NARRATIVE: CASE EVENT DATE: 20250201
